FAERS Safety Report 6820770-2 (Version None)
Quarter: 2010Q3

REPORT INFORMATION
  Report Type: 
  Country: None (occurrence: None)
  Receive Date: 20100707
  Receipt Date: 20070507
  Transmission Date: 20110219
  Serious: No
  Sender: FDA-Public Use
  Company Number: US-PFIZER INC-2007037002

PATIENT
  Sex: Male

DRUGS (2)
  1. ZOLOFT [Suspect]
  2. MOTRIN [Suspect]
     Indication: PAIN

REACTIONS (3)
  - ARTHROPATHY [None]
  - BLOOD PRESSURE INCREASED [None]
  - PAIN [None]
